FAERS Safety Report 22324030 (Version 2)
Quarter: 2023Q2

REPORT INFORMATION
  Report Type: Report from Study
  Country: US (occurrence: US)
  Receive Date: 20230516
  Receipt Date: 20230609
  Transmission Date: 20230721
  Serious: No
  Sender: FDA-Public Use
  Company Number: US-SA-SAC20230515001347

PATIENT
  Age: 78 Year
  Sex: Male
  Weight: 93.8 kg

DRUGS (20)
  1. DUPILUMAB [Suspect]
     Active Substance: DUPILUMAB
     Indication: Dermatitis atopic
     Dosage: 600 MG, 1X
     Route: 058
     Dates: start: 20220903, end: 20220903
  2. DUPILUMAB [Suspect]
     Active Substance: DUPILUMAB
     Dosage: 300 MG, QOW
     Route: 058
  3. UBRELVY [Concomitant]
     Active Substance: UBROGEPANT
  4. NURTEC ODT [Concomitant]
     Active Substance: RIMEGEPANT SULFATE
  5. TOPIRAMATE [Concomitant]
     Active Substance: TOPIRAMATE
  6. FLUARIX NOS [Concomitant]
     Active Substance: INFLUENZA VIRUS VACCINE
  7. KETOCONAZOLE [Concomitant]
     Active Substance: KETOCONAZOLE
  8. ZEASORB AF [MICONAZOLE NITRATE] [Concomitant]
  9. VITAMIN B12 [Concomitant]
     Active Substance: CYANOCOBALAMIN
  10. VITAMIN C [Concomitant]
     Active Substance: ASCORBIC ACID
  11. MIRALAX [Concomitant]
     Active Substance: POLYETHYLENE GLYCOL 3350
  12. BENEFIBER [WHEAT DEXTRIN] [Concomitant]
  13. CELEBREX [Concomitant]
     Active Substance: CELECOXIB
  14. FINASTERIDE [Concomitant]
     Active Substance: FINASTERIDE
  15. ZYRTEC [Concomitant]
     Active Substance: CETIRIZINE HYDROCHLORIDE
  16. ALLEGRA ALLERGY [Concomitant]
     Active Substance: FEXOFENADINE HYDROCHLORIDE
  17. FIORICET [Concomitant]
     Active Substance: ACETAMINOPHEN\BUTALBITAL\CAFFEINE
  18. LIPITOR [Concomitant]
     Active Substance: ATORVASTATIN CALCIUM
  19. WARFARIN SODIUM [Concomitant]
     Active Substance: WARFARIN SODIUM
  20. BALNEOL [Concomitant]

REACTIONS (1)
  - Therapeutic response decreased [Unknown]
